FAERS Safety Report 8027276-6 (Version None)
Quarter: 2012Q1

REPORT INFORMATION
  Report Type: 
  Country: None (occurrence: None)
  Receive Date: 20120106
  Receipt Date: 20120103
  Transmission Date: 20120608
  Serious: Yes (Hospitalization)
  Sender: FDA-Public Use
  Company Number: US-VERTEX PHARMACEUTICALS INC.-AE-2012-000115

PATIENT
  Sex: Female

DRUGS (3)
  1. INCIVEK [Suspect]
     Indication: HEPATITIS C
     Dates: start: 20111001, end: 20111229
  2. RIBAVIRIN [Concomitant]
     Indication: HEPATITIS C
     Dates: end: 20111229
  3. INTERFERON [Concomitant]
     Indication: HEPATITIS C
     Dates: end: 20111229

REACTIONS (8)
  - PLATELET COUNT DECREASED [None]
  - HAEMATURIA [None]
  - ARTERIOVENOUS MALFORMATION [None]
  - DIZZINESS [None]
  - HAEMATEMESIS [None]
  - GASTRITIS [None]
  - DIARRHOEA [None]
  - ANAEMIA [None]
